FAERS Safety Report 8414590-5 (Version None)
Quarter: 2012Q2

REPORT INFORMATION
  Report Type: 
  Country: None (occurrence: None)
  Receive Date: 20120605
  Receipt Date: 20120522
  Transmission Date: 20120825
  Serious: Yes (Other)
  Sender: FDA-Public Use
  Company Number: FR-PFIZER INC-2012132536

PATIENT
  Age: 65 Year
  Sex: Female

DRUGS (5)
  1. ZANTAC [Suspect]
     Indication: PREMEDICATION
     Dosage: 50 MG, UNK
     Route: 042
     Dates: start: 20120327
  2. PACLITAXEL [Suspect]
     Indication: BREAST CANCER METASTATIC
     Dosage: 103.68 MG, UNK
     Route: 042
     Dates: start: 20120327, end: 20120403
  3. POLARAMINE [Suspect]
     Indication: PREMEDICATION
     Dosage: 5 MG, UNK
     Route: 042
     Dates: start: 20120327
  4. ONDANSETRON [Suspect]
     Indication: PREMEDICATION
     Dosage: 8 MG, UNK
     Route: 042
     Dates: start: 20120327
  5. METHYLPREDNISOLONE [Suspect]
     Indication: PREMEDICATION
     Dosage: 120 MG, UNK
     Route: 042
     Dates: start: 20120327

REACTIONS (5)
  - ERYTHEMA [None]
  - BACK PAIN [None]
  - HYPERSENSITIVITY [None]
  - BLOOD PRESSURE INCREASED [None]
  - HEART RATE INCREASED [None]
